FAERS Safety Report 24724335 (Version 2)
Quarter: 2025Q1

REPORT INFORMATION
  Report Type: Report from Study
  Country: US (occurrence: US)
  Receive Date: 20241212
  Receipt Date: 20250102
  Transmission Date: 20250408
  Serious: Yes (Other)
  Sender: ROCHE
  Company Number: US-ROCHE-10000154434

PATIENT
  Age: 56 Year
  Sex: Female

DRUGS (2)
  1. XOLAIR PFS [Suspect]
     Active Substance: OMALIZUMAB
     Indication: Asthma
     Dosage: TOTAL: 375MG EVERY 2 WEEK
     Route: 058
  2. XOLAIR PFS [Suspect]
     Active Substance: OMALIZUMAB
     Dosage: (TOTAL: 375MG EVERY 2 WEEK(S))
     Route: 058

REACTIONS (1)
  - Autoimmune encephalopathy [Unknown]
